FAERS Safety Report 5183609-X (Version None)
Quarter: 2006Q4

REPORT INFORMATION
  Report Type: 
  Country: None (occurrence: None)
  Receive Date: 20061220
  Receipt Date: 20061211
  Transmission Date: 20070319
  Serious: Yes (Hospitalization)
  Sender: FDA-Public Use
  Company Number: IN-MERCK-0612USA02598

PATIENT
  Age: 11 Month
  Sex: Female

DRUGS (4)
  1. NOROXIN [Suspect]
     Indication: DIARRHOEA
     Route: 048
  2. NOROXIN [Suspect]
     Indication: PYREXIA
     Route: 048
  3. FLAGYL [Suspect]
     Indication: DIARRHOEA
     Route: 065
  4. FLAGYL [Suspect]
     Indication: PYREXIA
     Route: 065

REACTIONS (4)
  - DEHYDRATION [None]
  - DRUG INEFFECTIVE [None]
  - PRESCRIBED OVERDOSE [None]
  - SALMONELLA SEPSIS [None]
